FAERS Safety Report 6619126-7 (Version None)
Quarter: 2010Q1

REPORT INFORMATION
  Report Type: 
  Country: None (occurrence: None)
  Receive Date: 20100308
  Receipt Date: 20100303
  Transmission Date: 20100710
  Serious: Yes (Death)
  Sender: FDA-Public Use
  Company Number: AR-ABBOTT-10P-007-0629865-00

PATIENT
  Age: 76 Year
  Sex: Male
  Weight: 48 kg

DRUGS (2)
  1. HUMIRA [Suspect]
     Indication: RHEUMATOID ARTHRITIS
     Route: 058
     Dates: start: 20060101, end: 20100209
  2. OXYGEN [Concomitant]
     Indication: RESPIRATORY ARREST
     Dates: end: 20100209

REACTIONS (1)
  - RESPIRATORY ARREST [None]
